FAERS Safety Report 7022015-X (Version None)
Quarter: 2010Q3

REPORT INFORMATION
  Report Type: 
  Country: None (occurrence: None)
  Receive Date: 20100930
  Receipt Date: 20100924
  Transmission Date: 20110219
  Serious: Yes (Hospitalization)
  Sender: FDA-Public Use
  Company Number: NO-ASTRAZENECA-2010SE45128

PATIENT
  Age: 55 Year
  Sex: Female

DRUGS (7)
  1. CRESTOR [Suspect]
     Indication: TYPE IIA HYPERLIPIDAEMIA
     Route: 048
     Dates: start: 20100504, end: 20100601
  2. METOPROLOL SUCCINATE [Concomitant]
     Indication: HYPERTENSION
     Route: 048
  3. ALBYL-E [Concomitant]
     Indication: INTERMITTENT CLAUDICATION
     Route: 048
  4. PENICILLIN V POTASSIUM [Concomitant]
     Indication: INFECTION
     Route: 048
     Dates: start: 20100604
  5. CIPROXIN [Concomitant]
     Indication: URINARY TRACT INFECTION
     Route: 048
     Dates: start: 20100503
  6. EZETROL [Concomitant]
     Indication: TYPE IIA HYPERLIPIDAEMIA
     Route: 048
  7. RENITEC COMP [Concomitant]
     Indication: HYPERTENSION
     Route: 048

REACTIONS (1)
  - RENAL FAILURE ACUTE [None]
